FAERS Safety Report 6847526-9 (Version None)
Quarter: 2010Q3

REPORT INFORMATION
  Report Type: 
  Country: None (occurrence: None)
  Receive Date: 20100716
  Receipt Date: 20100708
  Transmission Date: 20110219
  Serious: Yes (Other)
  Sender: FDA-Public Use
  Company Number: US-PFIZER INC-2010086119

PATIENT
  Sex: Female
  Weight: 90.7 kg

DRUGS (9)
  1. LIPITOR [Suspect]
     Indication: BLOOD CHOLESTEROL INCREASED
     Dosage: 10 MG, DAILY
     Route: 048
     Dates: start: 20050101, end: 20060101
  2. LOVASTATIN [Suspect]
     Indication: BLOOD CHOLESTEROL INCREASED
     Dosage: 20 MG, DAILY
     Route: 048
     Dates: start: 20060801, end: 20070101
  3. NIASPAN [Suspect]
     Indication: BLOOD CHOLESTEROL INCREASED
     Dosage: 500 MG, DAILY
     Route: 048
     Dates: start: 20070101
  4. RED YEAST RICE [Suspect]
     Indication: BLOOD CHOLESTEROL INCREASED
     Dosage: UNK
     Dates: start: 20100101, end: 20100201
  5. VERAPAMIL [Concomitant]
     Indication: HYPERTENSION
     Dosage: UNK
  6. ACETYLSALICYLIC ACID [Concomitant]
     Indication: HYPERTENSION
     Dosage: 81 MG, UNK
  7. NORVASC [Concomitant]
     Indication: HYPERTENSION
     Dosage: UNK
  8. TYLENOL [Concomitant]
     Dosage: UNK
  9. PROPOXYPHENE HCL [Concomitant]
     Dosage: UNK

REACTIONS (6)
  - CATARACT [None]
  - EXERCISE TOLERANCE DECREASED [None]
  - EXOSTOSIS [None]
  - GLAUCOMA [None]
  - MYALGIA [None]
  - VISUAL ACUITY REDUCED [None]
